FAERS Safety Report 7671345-7 (Version None)
Quarter: 2011Q3

REPORT INFORMATION
  Report Type: 
  Country: None (occurrence: None)
  Receive Date: 20110804
  Receipt Date: 20110720
  Transmission Date: 20111222
  Serious: Yes (Life-Threatening, Hospitalization, Other)
  Sender: FDA-Public Use
  Company Number: 2011MA009197

PATIENT
  Age: 55 Year
  Sex: Male

DRUGS (4)
  1. ATAZANAVIR [Suspect]
     Indication: HIV INFECTION
     Dosage: 400 MG;QD
  2. OXYCODONE HCL [Suspect]
     Indication: BACK PAIN
     Dosage: 160 MG;QD
  3. ZIDOVUDINE [Suspect]
     Indication: HIV INFECTION
     Dosage: 300 MG;QD;
  4. LAMIVUDINE [Suspect]
     Indication: HIV INFECTION
     Dosage: 150 MG;QD;

REACTIONS (11)
  - TORSADE DE POINTES [None]
  - VENTRICULAR FIBRILLATION [None]
  - UNRESPONSIVE TO STIMULI [None]
  - PULSE ABSENT [None]
  - NAUSEA [None]
  - ELECTROCARDIOGRAM QT PROLONGED [None]
  - BACK PAIN [None]
  - VENTRICULAR TACHYCARDIA [None]
  - INCORRECT DOSE ADMINISTERED [None]
  - ASTHENIA [None]
  - CONDITION AGGRAVATED [None]
